FAERS Safety Report 9243549 (Version 1)
Quarter: 2013Q2

REPORT INFORMATION
  Report Type: Spontaneous
  Country: US (occurrence: US)
  Receive Date: 20130422
  Receipt Date: 20130422
  Transmission Date: 20140414
  Serious: Yes (Other)
  Sender: FDA-Public Use
  Company Number: US-AMGEN-USASP2013027247

PATIENT
  Sex: Female

DRUGS (1)
  1. PROCRIT [Suspect]
     Indication: PRODUCT USED FOR UNKNOWN INDICATION
     Dosage: 40000 UNIT, UNK
     Route: 058
     Dates: start: 201303

REACTIONS (3)
  - Palpitations [Not Recovered/Not Resolved]
  - Hyperventilation [Not Recovered/Not Resolved]
  - Tinnitus [Not Recovered/Not Resolved]
